FAERS Safety Report 16187355 (Version 1)
Quarter: 2019Q2

REPORT INFORMATION
  Report Type: Spontaneous
  Country: KR (occurrence: KR)
  Receive Date: 20190412
  Receipt Date: 20190412
  Transmission Date: 20190711
  Serious: Yes (Life-Threatening, Hospitalization, Other)
  Sender: FDA-Public Use
  Company Number: KR-BION-007923

PATIENT
  Age: 55 Year
  Sex: Male

DRUGS (6)
  1. BROMOCRIPTINE [Suspect]
     Active Substance: BROMOCRIPTINE
     Indication: COGNITIVE REHABILITATION
  2. ROPINIROLE/ROPINIROLE HYDROCHLORIDE [Suspect]
     Active Substance: ROPINIROLE HYDROCHLORIDE
     Indication: COGNITIVE REHABILITATION
  3. CARBIDOPA/LEVODOPA [Suspect]
     Active Substance: CARBIDOPA\LEVODOPA
     Indication: COGNITIVE REHABILITATION
     Dosage: 75/750 MG
  4. METHYLPHENIDATE/METHYLPHENIDATE HYDROCHLORIDE [Suspect]
     Active Substance: METHYLPHENIDATE HYDROCHLORIDE
     Indication: COGNITIVE REHABILITATION
  5. VENLAFAXINE/VENLAFAXINE HYDROCHLORIDE [Suspect]
     Active Substance: VENLAFAXINE HYDROCHLORIDE
     Indication: COGNITIVE REHABILITATION
  6. TIANEPTINE [Suspect]
     Active Substance: TIANEPTINE
     Indication: COGNITIVE REHABILITATION

REACTIONS (2)
  - Serotonin syndrome [Recovered/Resolved]
  - Stress cardiomyopathy [Recovered/Resolved]
